FAERS Safety Report 18384760 (Version 4)
Quarter: 2020Q4

REPORT INFORMATION
  Report Type: Spontaneous
  Country: JP (occurrence: JP)
  Receive Date: 20201015
  Receipt Date: 20201223
  Transmission Date: 20210114
  Serious: Yes (Other)
  Sender: FDA-Public Use
  Company Number: NVSJ2020JP010006

PATIENT
  Age: 2 Month
  Sex: Female
  Weight: 3.5 kg

DRUGS (2)
  1. PREDNISOLONE. [Concomitant]
     Active Substance: PREDNISOLONE
     Indication: PRODUCT USED FOR UNKNOWN INDICATION
     Dosage: 1 MG/KG
     Route: 048
     Dates: start: 20200916
  2. ZOLGENSMA [Suspect]
     Active Substance: ONASEMNOGENE ABEPARVOVEC-XIOI
     Indication: SPINAL MUSCULAR ATROPHY
     Dosage: UNK
     Route: 041
     Dates: start: 20200917, end: 20200917

REACTIONS (6)
  - Increased upper airway secretion [Unknown]
  - Apnoea [Recovered/Resolved]
  - Dyspnoea [Unknown]
  - Bradyarrhythmia [Recovered/Resolved]
  - Syncope [Unknown]
  - Altered state of consciousness [Unknown]

NARRATIVE: CASE EVENT DATE: 20201007
